FAERS Safety Report 7319654-5 (Version None)
Quarter: 2011Q1

REPORT INFORMATION
  Report Type: 
  Country: None (occurrence: None)
  Receive Date: 20110228
  Receipt Date: 20100706
  Transmission Date: 20110831
  Serious: No
  Sender: FDA-Public Use
  Company Number: A0868683A

PATIENT

DRUGS (2)
  1. KLONOPIN [Concomitant]
  2. LAMICTAL [Suspect]
     Indication: BIPOLAR DISORDER
     Dosage: 300MG PER DAY
     Route: 048

REACTIONS (2)
  - LETHARGY [None]
  - SOMNOLENCE [None]
